FAERS Safety Report 7196645-9 (Version None)
Quarter: 2010Q4

REPORT INFORMATION
  Report Type: 
  Country: None (occurrence: None)
  Receive Date: 20101223
  Receipt Date: 20101028
  Transmission Date: 20110411
  Serious: No
  Sender: FDA-Public Use
  Company Number: US-AMGEN-USASP2010002242

PATIENT

DRUGS (1)
  1. ENBREL [Suspect]
     Indication: RHEUMATOID ARTHRITIS
     Dosage: 25 MG, 2 TIMES/WK
     Dates: start: 20070101, end: 20101012

REACTIONS (7)
  - FEELING ABNORMAL [None]
  - HOT FLUSH [None]
  - IRRITABILITY [None]
  - PARAESTHESIA [None]
  - PRURITUS [None]
  - RASH [None]
  - VISUAL ACUITY REDUCED [None]
